FAERS Safety Report 7824144-7 (Version None)
Quarter: 2011Q4

REPORT INFORMATION
  Report Type: 
  Country: None (occurrence: None)
  Receive Date: 20111019
  Receipt Date: 20111014
  Transmission Date: 20120403
  Serious: Yes (Hospitalization)
  Sender: FDA-Public Use
  Company Number: PHEH2011US06937

PATIENT
  Age: 68 Year
  Sex: Male

DRUGS (1)
  1. TOBI [Suspect]
     Dosage: 300 MG, (1 VIAL IN NEBULIZER THREE TIMES A WEEK)
     Dates: start: 20091125

REACTIONS (1)
  - LUNG INFECTION [None]
